FAERS Safety Report 19830572 (Version 6)
Quarter: 2022Q1

REPORT INFORMATION
  Report Type: Spontaneous
  Country: CO (occurrence: CO)
  Receive Date: 20210915
  Receipt Date: 20220125
  Transmission Date: 20220423
  Serious: Yes (Disabling, Other)
  Sender: FDA-Public Use
  Company Number: CO-PFIZER INC-202100970136

PATIENT
  Age: 45 Year
  Sex: Female

DRUGS (3)
  1. ENBREL [Suspect]
     Active Substance: ETANERCEPT
     Indication: Ankylosing spondylitis
     Dosage: 50 MG, WEEKLY
     Route: 058
     Dates: start: 2011, end: 2013
  2. ENBREL [Suspect]
     Active Substance: ETANERCEPT
     Dosage: 50 MG
     Route: 058
     Dates: end: 2015
  3. ENBREL [Suspect]
     Active Substance: ETANERCEPT
     Dosage: 50 MG
     Route: 058

REACTIONS (37)
  - Polyarthritis [Unknown]
  - Swelling [Unknown]
  - Stress [Unknown]
  - Vertigo [Unknown]
  - Incontinence [Unknown]
  - Constipation [Unknown]
  - Arthritis [Unknown]
  - Lack of application site rotation [Unknown]
  - Mass [Unknown]
  - Mobility decreased [Not Recovered/Not Resolved]
  - Gait disturbance [Unknown]
  - Illness [Unknown]
  - Sensitivity to weather change [Not Recovered/Not Resolved]
  - Renal disorder [Unknown]
  - Urinary retention [Not Recovered/Not Resolved]
  - Choking [Not Recovered/Not Resolved]
  - Cardiac disorder [Not Recovered/Not Resolved]
  - Pain in extremity [Unknown]
  - Malaise [Not Recovered/Not Resolved]
  - Crying [Not Recovered/Not Resolved]
  - Fluid retention [Not Recovered/Not Resolved]
  - Wheezing [Not Recovered/Not Resolved]
  - Cardiac discomfort [Not Recovered/Not Resolved]
  - Erythema [Not Recovered/Not Resolved]
  - Heat stroke [Not Recovered/Not Resolved]
  - Feeling hot [Not Recovered/Not Resolved]
  - Gait inability [Not Recovered/Not Resolved]
  - Product dispensing issue [Unknown]
  - Joint swelling [Not Recovered/Not Resolved]
  - Peripheral swelling [Unknown]
  - Arthralgia [Not Recovered/Not Resolved]
  - Pain [Unknown]
  - Pulmonary oedema [Unknown]
  - Pyrexia [Not Recovered/Not Resolved]
  - COVID-19 [Unknown]
  - Oral herpes [Unknown]
  - Injection site pain [Unknown]

NARRATIVE: CASE EVENT DATE: 20110101
